FAERS Safety Report 24771119 (Version 1)
Quarter: 2024Q4

REPORT INFORMATION
  Report Type: Spontaneous
  Country: ES (occurrence: ES)
  Receive Date: 20241224
  Receipt Date: 20241224
  Transmission Date: 20250114
  Serious: Yes (Hospitalization)
  Sender: NOVARTIS
  Company Number: None

PATIENT
  Age: 53 Year
  Sex: Female

DRUGS (4)
  1. MYFORTIC [Interacting]
     Active Substance: MYCOPHENOLATE SODIUM
     Indication: Haemolytic anaemia
     Dosage: 720 MG, QD
     Route: 048
     Dates: start: 20241015, end: 20241024
  2. PREDNISONE [Interacting]
     Active Substance: PREDNISONE
     Indication: Haemolytic anaemia
     Dosage: 10 MG, QD
     Route: 048
     Dates: start: 20240630
  3. FOSAMAX [Concomitant]
     Active Substance: ALENDRONATE SODIUM
     Indication: Osteoporosis
     Dosage: UNK, SEMANAL 70 MG COMPRIMIDOS
     Route: 048
     Dates: start: 202408
  4. FLUTICASONE FUROATE\VILANTEROL TRIFENATATE [Concomitant]
     Active Substance: FLUTICASONE FUROATE\VILANTEROL TRIFENATATE
     Indication: Cystic fibrosis
     Dosage: UNK, POWDER FOR INHALATION (UNIDODIS)
     Route: 055
     Dates: start: 202405

REACTIONS (1)
  - Campylobacter gastroenteritis [Recovered/Resolved]

NARRATIVE: CASE EVENT DATE: 20241015
